FAERS Safety Report 6526639-5 (Version None)
Quarter: 2009Q4

REPORT INFORMATION
  Report Type: 
  Country: None (occurrence: None)
  Receive Date: 20091230
  Receipt Date: 20091229
  Transmission Date: 20100525
  Serious: Yes (Death)
  Sender: FDA-Public Use
  Company Number: SPV1-2009-02346

PATIENT
  Age: 79 Year
  Sex: Male

DRUGS (21)
  1. FOSRENOL [Suspect]
     Indication: HYPERPHOSPHATAEMIA
     Dosage: 10001 MG, 3X/DAY:TID, ORAL
     Route: 048
     Dates: start: 20081205
  2. CELEXA [Concomitant]
  3. COLACE (DOCUSATE SODIUM) [Concomitant]
  4. COUMADIN [Concomitant]
  5. ERGOCALCIFEROL [Concomitant]
  6. GUAIFENESIN/CODEINE (CODEINE PHOSPHATE, GUAIFENESIN) [Concomitant]
  7. HYDROCORTONE [Concomitant]
  8. KAYEXALATE [Concomitant]
  9. LOMOTIL /00034001/ (ATROPINE SULFATE, DIPHENOXYLATE HYDROCHLORIDE) [Concomitant]
  10. LOPRESSOR [Concomitant]
  11. 426 (MIDODRINE) (MIDODRINE HYDROCHLORIDE) [Concomitant]
  12. NEURONTIN [Concomitant]
  13. DIALYVITE 3000 (ASCORBIC ACID, FOLIC ACID, VITAMIN-B-KOMPLEX STANDARD) [Concomitant]
  14. IMODIUM /00384302/ (LOPERAMIDE HYDROCHLORIDE) [Concomitant]
  15. WHEY PRO POWDER [Concomitant]
  16. POTASSIUM CHLORIDE [Concomitant]
  17. ROBITUSSIN DM /00288801/ (DEXTROMETHORPHAN HYDROBOMIDE, ETHANOL, GUAIF [Concomitant]
  18. SYNTHROID [Concomitant]
  19. TEGRETOL [Concomitant]
  20. TIMOLOL MALEATE [Concomitant]
  21. TYLENOL /00020001/ (PARACETAMOL) [Concomitant]

REACTIONS (1)
  - CARDIO-RESPIRATORY ARREST [None]
